FAERS Safety Report 10142782 (Version 1)
Quarter: 2014Q2

REPORT INFORMATION
  Report Type: Spontaneous
  Country: US (occurrence: None)
  Receive Date: 20140429
  Receipt Date: 20140429
  Transmission Date: 20141212
  Serious: Yes (Other)
  Sender: FDA-Public Use
  Company Number: None

PATIENT
  Age: 82 Year
  Sex: Male
  Weight: 72.58 kg

DRUGS (9)
  1. TOVIAZ PFIZER [Suspect]
     Indication: MICTURITION URGENCY
     Dates: start: 20140407, end: 20140428
  2. WARFARIN [Concomitant]
  3. SPIRONOLACTIN [Concomitant]
  4. PRAVASTATIN [Concomitant]
  5. PRAVASTATIN [Concomitant]
  6. LISINOPRIL [Concomitant]
  7. VITAMIN B [Concomitant]
  8. VITAMIN C [Concomitant]
  9. VITAMIN D [Concomitant]

REACTIONS (1)
  - Myopia [None]
